FAERS Safety Report 7427591-0 (Version None)
Quarter: 2011Q2

REPORT INFORMATION
  Report Type: 
  Country: None (occurrence: None)
  Receive Date: 20110420
  Receipt Date: 20110407
  Transmission Date: 20111010
  Serious: Yes (Other)
  Sender: FDA-Public Use
  Company Number: DE-MYLANLABS-2011S1007334

PATIENT
  Sex: Male

DRUGS (9)
  1. ASS 100 [Concomitant]
     Indication: PRODUCT USED FOR UNKNOWN INDICATION
  2. CLOPIDOGREL STADA [Concomitant]
     Indication: PRODUCT USED FOR UNKNOWN INDICATION
  3. SIMVASTATIN [Concomitant]
     Indication: PRODUCT USED FOR UNKNOWN INDICATION
  4. BISOPLUS STADA [Concomitant]
     Indication: PRODUCT USED FOR UNKNOWN INDICATION
     Dosage: 10/25 MG STRENGTH
  5. AMLODIPINE [Suspect]
     Indication: PRODUCT USED FOR UNKNOWN INDICATION
     Route: 048
     Dates: start: 20010101
  6. LOSARTAN STADA [Concomitant]
     Indication: PRODUCT USED FOR UNKNOWN INDICATION
  7. ISDN AL [Concomitant]
     Indication: PRODUCT USED FOR UNKNOWN INDICATION
  8. ZOPICLON [Concomitant]
     Indication: PRODUCT USED FOR UNKNOWN INDICATION
  9. MIRTAZAPIN AL [Concomitant]
     Indication: PRODUCT USED FOR UNKNOWN INDICATION

REACTIONS (8)
  - TINNITUS [None]
  - HEADACHE [None]
  - PSORIASIS [None]
  - MALAISE [None]
  - RENAL PAIN [None]
  - VISUAL IMPAIRMENT [None]
  - GINGIVAL BLEEDING [None]
  - ABDOMINAL PAIN UPPER [None]
